FAERS Safety Report 5719256-8 (Version None)
Quarter: 2008Q2

REPORT INFORMATION
  Report Type: 
  Country: None (occurrence: None)
  Receive Date: 20080425
  Receipt Date: 20080425
  Transmission Date: 20081010
  Serious: Yes (Life-Threatening)
  Sender: FDA-Public Use
  Company Number: None

PATIENT
  Sex: Female
  Weight: 46.2669 kg

DRUGS (10)
  1. ISORDIL [Suspect]
     Dosage: 10 MG
  2. VALIUM [Suspect]
     Dosage: 5 MG
  3. FOSAMAX [Suspect]
     Dosage: 70 MG
  4. CALCIUM [Suspect]
     Dosage: 500 MG
  5. PROCARDIA XL [Suspect]
     Dosage: 30 MG
  6. OXANDRIN [Suspect]
     Dosage: 10 MG
  7. ARICEPT [Suspect]
     Dosage: 10 MG
  8. NAMENDA [Suspect]
     Dosage: 10 MG
  9. PEPCID [Suspect]
     Dosage: 20 MG
  10. ZOCOR [Suspect]
     Dosage: 20 MG

REACTIONS (6)
  - ABDOMINAL PAIN UPPER [None]
  - DIZZINESS [None]
  - HEADACHE [None]
  - ILL-DEFINED DISORDER [None]
  - MALAISE [None]
  - PHARMACEUTICAL PRODUCT COMPLAINT [None]
